FAERS Safety Report 23626960 (Version 1)
Quarter: 2024Q1

REPORT INFORMATION
  Report Type: Spontaneous
  Country: CN (occurrence: CN)
  Receive Date: 20240313
  Receipt Date: 20240313
  Transmission Date: 20240410
  Serious: Yes (Disabling, Other)
  Sender: FDA-Public Use
  Company Number: CN-009507513-2403CHN003593

PATIENT
  Age: 56 Year
  Sex: Male
  Weight: 62 kg

DRUGS (4)
  1. KEYTRUDA [Suspect]
     Active Substance: PEMBROLIZUMAB
     Indication: Hepatocellular carcinoma
     Dosage: 200 MG, EVERY 21 DAYS
     Route: 041
     Dates: start: 20231126
  2. KEYTRUDA [Suspect]
     Active Substance: PEMBROLIZUMAB
     Dosage: 200 MG, EVERY 21 DAYS
     Route: 041
     Dates: start: 20240228
  3. LENVATINIB MESYLATE [Suspect]
     Active Substance: LENVATINIB MESYLATE
     Indication: Hepatocellular carcinoma
     Dosage: 12 MG, QD, ORALLY
     Route: 048
     Dates: start: 20231126
  4. LENVATINIB MESYLATE [Suspect]
     Active Substance: LENVATINIB MESYLATE
     Dosage: 12 MG, QD, ORALLY
     Route: 048
     Dates: start: 20240228

REACTIONS (5)
  - Coronary artery stenosis [Unknown]
  - Arteriosclerosis coronary artery [Unknown]
  - Malignant neoplasm progression [Unknown]
  - Immune-mediated myositis [Recovering/Resolving]
  - Product use issue [Unknown]

NARRATIVE: CASE EVENT DATE: 20231126
